FAERS Safety Report 22080752 (Version 1)
Quarter: 2023Q1

REPORT INFORMATION
  Report Type: Spontaneous
  Country: CA (occurrence: CA)
  Receive Date: 20230309
  Receipt Date: 20230309
  Transmission Date: 20230418
  Serious: Yes (Life-Threatening, Hospitalization, Other)
  Sender: FDA-Public Use
  Company Number: CA-009507513-2303CAN002671

PATIENT
  Age: 50 Year
  Sex: Male
  Weight: 123 kg

DRUGS (16)
  1. INTEGRILIN [Suspect]
     Active Substance: EPTIFIBATIDE
     Indication: Myocardial infarction
     Dosage: DOSAGE FORM: SOLUTION INTRAVENOUS
  2. ASPIRIN [Suspect]
     Active Substance: ASPIRIN
     Indication: Myocardial infarction
     Dosage: DOSAGE FORM: NOT SPECIFIED, 320 MILLIGRAM
     Route: 048
  3. HEPARIN SODIUM [Suspect]
     Active Substance: HEPARIN SODIUM
     Indication: Myocardial infarction
     Dosage: DOSAGE FORM: SOLUTION INTRAVENOUS, DOSE: 1000 UNITS
     Route: 042
  4. PLAVIX [Suspect]
     Active Substance: CLOPIDOGREL BISULFATE
     Indication: Myocardial infarction
     Dosage: 300 MILLIGRAM
     Route: 048
  5. TNKASE [Suspect]
     Active Substance: TENECTEPLASE
     Indication: Myocardial infarction
     Dosage: DOSAGE FORM: POWDER FOR SOLUTION INTRAVENOUS
     Route: 042
  6. ACETAMINOPHEN [Concomitant]
     Active Substance: ACETAMINOPHEN
     Dosage: DOSAGE FORM: NOT SPECIFIED
  7. BISOPROLOL [Concomitant]
     Active Substance: BISOPROLOL
     Dosage: UNK
     Route: 065
  8. DIMENHYDRINATE [Concomitant]
     Active Substance: DIMENHYDRINATE
     Dosage: DOSAGE FORM: NOT SPECIFIED
  9. FENTANYL CITRATE [Concomitant]
     Active Substance: FENTANYL CITRATE
     Dosage: DOSAGE FORM: LIQUID EPIDURAL
     Route: 062
  10. LORAZEPAM [Concomitant]
     Active Substance: LORAZEPAM
     Dosage: DOSAGE FORM: NOT SPECIFIED
     Route: 065
  11. METOPROLOL [Concomitant]
     Active Substance: METOPROLOL
     Dosage: UNK
     Route: 065
  12. MORPHINE [Concomitant]
     Active Substance: MORPHINE
     Dosage: DOSAGE FORM: NOT SPECIFIED
  13. NICOTINE [Concomitant]
     Active Substance: NICOTINE
     Dosage: UNK
  14. NITROGLYCERIN [Concomitant]
     Active Substance: NITROGLYCERIN
     Dosage: DOSAGE FORM: PATCH
  15. PANTOPRAZOLE [Concomitant]
     Active Substance: PANTOPRAZOLE
     Dosage: DOSAGE FORM: POWDER FOR SOLUTION INTRAVENOUS
  16. PERINDOPRIL [Concomitant]
     Active Substance: PERINDOPRIL
     Dosage: DOSAGE FORM: NOT SPECIFIED

REACTIONS (4)
  - Transfusion [Recovering/Resolving]
  - Haemostasis [Recovering/Resolving]
  - Gastrointestinal haemorrhage [Recovering/Resolving]
  - Haemoglobin decreased [Recovering/Resolving]
